FAERS Safety Report 17165583 (Version 4)
Quarter: 2020Q3

REPORT INFORMATION
  Report Type: Spontaneous
  Country: US (occurrence: US)
  Receive Date: 20191217
  Receipt Date: 20200727
  Transmission Date: 20201102
  Serious: Yes (Hospitalization, Other)
  Sender: FDA-Public Use
  Company Number: US-ASTRAZENECA-2019SF79089

PATIENT
  Age: 64 Year
  Sex: Male
  Weight: 92.5 kg

DRUGS (12)
  1. BYDUREON [Suspect]
     Active Substance: EXENATIDE
     Indication: TYPE 2 DIABETES MELLITUS
     Route: 058
     Dates: start: 201910, end: 202001
  2. BYDUREON BCISE [Suspect]
     Active Substance: EXENATIDE
     Indication: TYPE 2 DIABETES MELLITUS
     Route: 058
     Dates: start: 202001
  3. COREG [Concomitant]
     Active Substance: CARVEDILOL
     Route: 065
  4. JARDIANCE [Concomitant]
     Active Substance: EMPAGLIFLOZIN
     Route: 065
  5. METFORMIN [Concomitant]
     Active Substance: METFORMIN HYDROCHLORIDE
     Route: 065
  6. INSULIN [Concomitant]
     Active Substance: INSULIN NOS
     Route: 065
  7. PRISTIQ EXTENDED?RELEASE [Concomitant]
     Active Substance: DESVENLAFAXINE SUCCINATE
     Route: 065
  8. LIPITOR [Concomitant]
     Active Substance: ATORVASTATIN CALCIUM
     Route: 065
  9. PRILOSEC [Suspect]
     Active Substance: OMEPRAZOLE MAGNESIUM
     Route: 048
  10. FLONASE [Concomitant]
     Active Substance: FLUTICASONE PROPIONATE
     Route: 065
  11. LAMOTRIGINE. [Concomitant]
     Active Substance: LAMOTRIGINE
     Route: 065
  12. FLOMAX [Concomitant]
     Active Substance: TAMSULOSIN HYDROCHLORIDE
     Route: 065

REACTIONS (17)
  - Body temperature increased [Recovered/Resolved]
  - Gait disturbance [Unknown]
  - Incorrect dose administered by device [Unknown]
  - Intentional product misuse [Unknown]
  - Device malfunction [Unknown]
  - Oropharyngeal pain [Recovering/Resolving]
  - Cough [Recovering/Resolving]
  - Abdominal pain upper [Recovering/Resolving]
  - Product dose omission issue [Unknown]
  - Device leakage [Unknown]
  - SARS-CoV-2 test negative [Recovered/Resolved]
  - Injection site mass [Unknown]
  - Type 2 diabetes mellitus [Unknown]
  - Injection site pain [Unknown]
  - Chest pain [Recovering/Resolving]
  - Headache [Recovering/Resolving]
  - Diabetes mellitus inadequate control [Unknown]

NARRATIVE: CASE EVENT DATE: 2019
